FAERS Safety Report 10080916 (Version 1)
Quarter: 2014Q2

REPORT INFORMATION
  Report Type: Spontaneous
  Country: IT (occurrence: IT)
  Receive Date: 20140416
  Receipt Date: 20140416
  Transmission Date: 20141212
  Serious: Yes (Other)
  Sender: FDA-Public Use
  Company Number: IT-TEVA-474928ISR

PATIENT
  Age: 56 Year
  Sex: 0

DRUGS (1)
  1. SODIUM VALPROATE /VALPROIC ACID [Suspect]
     Indication: DYSTHYMIC DISORDER
     Dosage: 100 MILLIGRAM DAILY;
     Route: 048

REACTIONS (1)
  - Pleuropericarditis [Recovered/Resolved]
